FAERS Safety Report 9098287 (Version 1)
Quarter: 2013Q1

REPORT INFORMATION
  Report Type: Spontaneous
  Country: US (occurrence: US)
  Receive Date: 20130213
  Receipt Date: 20130213
  Transmission Date: 20140127
  Serious: Yes (Death, Hospitalization)
  Sender: FDA-Public Use
  Company Number: PHHY2013US011717

PATIENT
  Age: 78 Year
  Sex: Female

DRUGS (11)
  1. CICLOSPORIN [Suspect]
     Indication: RENAL TRANSPLANT
     Dosage: 25 MG, Q6H
  2. SUMATRIPTAN [Suspect]
     Route: 048
  3. PREDNISONE [Concomitant]
     Dosage: 05 MG, QD
  4. DILTIAZEM [Concomitant]
     Dosage: 120 MG, QD
  5. ATENOLOL [Concomitant]
     Dosage: 50 MG, QD
  6. ALLOPURINOL [Concomitant]
     Dosage: 150 MG, QD
  7. METHIMAZOLE [Concomitant]
     Dosage: 2.5 MG, QD
  8. RISEDRONATE [Concomitant]
     Dosage: 35 MG, QW
  9. TEMAZEPAM [Concomitant]
  10. ALPRAZOLAM [Concomitant]
  11. FUROSEMIDE [Concomitant]

REACTIONS (14)
  - Renal infarct [Fatal]
  - Kidney fibrosis [Fatal]
  - Renal tubular atrophy [Fatal]
  - Anuria [Fatal]
  - Blood urine [Fatal]
  - Nephrosclerosis [Fatal]
  - Renal necrosis [Fatal]
  - Pain [Fatal]
  - Abdominal tenderness [Fatal]
  - Abdominal pain [Fatal]
  - Hypotension [Unknown]
  - Polyuria [Unknown]
  - Migraine [Unknown]
  - Nausea [Unknown]
